FAERS Safety Report 14109884 (Version 1)
Quarter: 2017Q4

REPORT INFORMATION
  Report Type: Spontaneous
  Country: FR (occurrence: FR)
  Receive Date: 20171020
  Receipt Date: 20171020
  Transmission Date: 20180321
  Serious: Yes (Hospitalization)
  Sender: FDA-Public Use
  Company Number: FR-ASTRAZENECA-2017SF05629

PATIENT
  Age: 21408 Day
  Sex: Male

DRUGS (6)
  1. SPIRONOLACTONE. [Suspect]
     Active Substance: SPIRONOLACTONE
     Indication: CARDIOVASCULAR EVENT PROPHYLAXIS
     Dosage: MYLAN, 12.5 MG ONCE A DAY CORRESPONDING TO 0.5 DOSAGE FORM ONCE A DAY
     Route: 048
     Dates: start: 20170802, end: 20170831
  2. KARDEGIC [Concomitant]
     Active Substance: ASPIRIN DL-LYSINE
  3. BISOPROLOL [Concomitant]
     Active Substance: BISOPROLOL
  4. BRILIQUE [Suspect]
     Active Substance: TICAGRELOR
     Indication: CARDIOVASCULAR EVENT PROPHYLAXIS
     Route: 048
     Dates: start: 20170802, end: 20170831
  5. ATORVASTATIN [Concomitant]
     Active Substance: ATORVASTATIN
  6. RAMIPRIL. [Suspect]
     Active Substance: RAMIPRIL
     Indication: CARDIOVASCULAR EVENT PROPHYLAXIS
     Dosage: MYLAN, 2.5 MG DAILY
     Route: 048
     Dates: start: 20170802, end: 20170831

REACTIONS (1)
  - Thrombocytopenia [Recovered/Resolved]

NARRATIVE: CASE EVENT DATE: 20170831
